FAERS Safety Report 4432048-5 (Version None)
Quarter: 2004Q3

REPORT INFORMATION
  Report Type: 
  Country: None (occurrence: None)
  Receive Date: 20040825
  Receipt Date: 20040401
  Transmission Date: 20050211
  Serious: Yes (Hospitalization, Other)
  Sender: FDA-Public Use
  Company Number: PHEH2004US03765

PATIENT
  Age: 70 Year
  Sex: Male

DRUGS (4)
  1. ZOMETA [Suspect]
     Indication: METASTASES TO BONE
     Dosage: 4 MG EVERY 4 WEEKS
     Route: 042
     Dates: start: 20040113, end: 20040309
  2. DEPO-PROVERA [Concomitant]
     Indication: PROSTATE CANCER
     Dates: start: 20031229
  3. LUPRON [Concomitant]
     Indication: PROSTATE CANCER
     Dates: start: 20031229
  4. FLOMAX [Concomitant]
     Dosage: UNK, QD

REACTIONS (5)
  - NEUROGENIC BLADDER [None]
  - OBSTRUCTIVE UROPATHY [None]
  - RENAL FAILURE [None]
  - SURGERY [None]
  - URINARY RETENTION [None]
